FAERS Safety Report 8816941 (Version 1)
Quarter: 2012Q4

REPORT INFORMATION
  Report Type: Spontaneous
  Country: US (occurrence: None)
  Receive Date: 20121002
  Receipt Date: 20121002
  Transmission Date: 20130627
  Serious: Yes (Other)
  Sender: FDA-Public Use
  Company Number: None

PATIENT
  Age: 53 Year
  Sex: Male
  Weight: 95.26 kg

DRUGS (1)
  1. CYMBALTA [Suspect]
     Indication: NEUROPATHY PERIPHERAL
     Dosage: 30mg Daily po
     Route: 048
     Dates: start: 20120920, end: 20120926

REACTIONS (4)
  - Vision blurred [None]
  - Insomnia [None]
  - Orgasm abnormal [None]
  - Ejaculation delayed [None]
